FAERS Safety Report 6241152-0 (Version None)
Quarter: 2009Q2

REPORT INFORMATION
  Report Type: 
  Country: None (occurrence: None)
  Receive Date: 20090623
  Receipt Date: 20090609
  Transmission Date: 20091009
  Serious: Yes (Other)
  Sender: FDA-Public Use
  Company Number: RU-GENENTECH-285295

PATIENT
  Sex: Female

DRUGS (5)
  1. HERCEPTIN [Suspect]
     Indication: BREAST CANCER METASTATIC
     Dosage: 4 MG/KG, 1/WEEK
     Route: 042
     Dates: start: 20080501, end: 20090609
  2. HERCEPTIN [Suspect]
     Dosage: 2 MG/KG, 1/WEEK
  3. NAVELBINE [Concomitant]
     Indication: DRUG USE FOR UNKNOWN INDICATION
     Dosage: UNK
     Dates: start: 20090608
  4. XELODA [Concomitant]
     Indication: DRUG USE FOR UNKNOWN INDICATION
     Dosage: UNK
     Dates: start: 20090608
  5. ZOMETA [Concomitant]
     Indication: DRUG USE FOR UNKNOWN INDICATION
     Dosage: UNK

REACTIONS (8)
  - ANXIETY [None]
  - BLOOD PRESSURE DECREASED [None]
  - BRONCHOSPASM [None]
  - COLD SWEAT [None]
  - DISEASE PROGRESSION [None]
  - DYSPNOEA [None]
  - HYPOVENTILATION [None]
  - TACHYCARDIA [None]
